FAERS Safety Report 21864694 (Version 1)
Quarter: 2023Q1

REPORT INFORMATION
  Report Type: Spontaneous
  Country: US (occurrence: US)
  Receive Date: 20230116
  Receipt Date: 20230116
  Transmission Date: 20230418
  Serious: No
  Sender: FDA-Public Use
  Company Number: US-drreddys-SPO/USA/23/0159542

PATIENT
  Age: 75 Year
  Sex: Female

DRUGS (10)
  1. LENALIDOMIDE [Suspect]
     Active Substance: LENALIDOMIDE
     Indication: Plasma cell myeloma
     Dosage: WITH WATER, W/ OR W/O FOOD, AT AROUND SAME TIME DAILY FOR 21 DAYS THEN 7 DAY BREAK
     Route: 048
  2. ATORVASTATIN [Concomitant]
     Active Substance: ATORVASTATIN
     Indication: Product used for unknown indication
  3. PANTOPRAZOLE SODIUM [Concomitant]
     Active Substance: PANTOPRAZOLE SODIUM
     Indication: Product used for unknown indication
  4. ALBUTEROL SU AER [Concomitant]
     Indication: Product used for unknown indication
     Dosage: 108, 90
  5. BISOPROLOL F [Concomitant]
     Indication: Product used for unknown indication
  6. BREO ELLIPTA AEP [Concomitant]
     Indication: Product used for unknown indication
     Dosage: 100- 25MC
  7. DEXAMETHASONE [Concomitant]
     Active Substance: DEXAMETHASONE
     Indication: Product used for unknown indication
  8. LOSARTAN POTASSIUM [Concomitant]
     Active Substance: LOSARTAN POTASSIUM
     Indication: Product used for unknown indication
  9. REVLIMID [Concomitant]
     Active Substance: LENALIDOMIDE
     Indication: Product used for unknown indication
  10. TYLENOL 8 HO TBC [Concomitant]
     Indication: Product used for unknown indication

REACTIONS (1)
  - Product dose omission issue [Unknown]
